FAERS Safety Report 19148514 (Version 2)
Quarter: 2022Q2

REPORT INFORMATION
  Report Type: Report from Study
  Country: AU (occurrence: AU)
  Receive Date: 20210416
  Receipt Date: 20220531
  Transmission Date: 20220721
  Serious: Yes (Hospitalization)
  Sender: FDA-Public Use
  Company Number: AU-SA-2018SA255109

PATIENT
  Age: 68 Year
  Sex: Male
  Weight: 107.2 kg

DRUGS (27)
  1. ISATUXIMAB [Suspect]
     Active Substance: ISATUXIMAB
     Indication: Plasma cell myeloma
     Dosage: (START TIME: 13:21, STOP TIME: 16:36)10 MG/KG, QW
     Route: 042
     Dates: start: 20180907, end: 20180907
  2. ISATUXIMAB [Suspect]
     Active Substance: ISATUXIMAB
     Dosage: 10 MG/KG, QW (START TIME: 11:10, STOP TIME: 12:21)
     Route: 042
     Dates: start: 20180907, end: 20180907
  3. BORTEZOMIB [Suspect]
     Active Substance: BORTEZOMIB
     Indication: Plasma cell myeloma
     Dosage: 1.3 MG/M2, OTHER
     Route: 058
     Dates: start: 20180907, end: 20180907
  4. LENALIDOMIDE [Suspect]
     Active Substance: LENALIDOMIDE
     Indication: Plasma cell myeloma
     Dosage: 25 MG, QD, 10:25
     Route: 048
     Dates: start: 20180907, end: 20180913
  5. DEXAMETHASONE [Suspect]
     Active Substance: DEXAMETHASONE
     Indication: Plasma cell myeloma
     Dosage: 20 MG, QD
     Route: 042
     Dates: start: 20180907, end: 20180907
  6. ACETAMINOPHEN [Concomitant]
     Active Substance: ACETAMINOPHEN
     Dosage: UNK
     Route: 048
     Dates: start: 20180821
  7. ACETAMINOPHEN [Concomitant]
     Active Substance: ACETAMINOPHEN
     Dosage: TOTAL DAILY DOSE: 1000 MG
     Route: 048
     Dates: start: 20180907, end: 20180907
  8. RANITIDINE [Concomitant]
     Active Substance: RANITIDINE
     Indication: Prophylaxis
     Dosage: UNK
     Route: 042
     Dates: start: 20180907, end: 20180907
  9. PROMETHAZINE [Concomitant]
     Active Substance: PROMETHAZINE HYDROCHLORIDE
     Indication: Prophylaxis
     Dosage: TOTAL DAILY DOSE: 25 MG
     Route: 042
     Dates: start: 20180907, end: 20180907
  10. ALLOPURINOL [Concomitant]
     Active Substance: ALLOPURINOL
     Indication: Prophylaxis
     Dosage: UNK
     Route: 048
     Dates: start: 20180821, end: 20181005
  11. OXYCODONE [Concomitant]
     Active Substance: OXYCODONE
     Dosage: UNK UNK, UNK
     Route: 048
     Dates: start: 20180821, end: 20180828
  12. DEXAMETHASONE [Concomitant]
     Active Substance: DEXAMETHASONE
     Dosage: UNK UNK, UNK
     Route: 048
     Dates: start: 20180822, end: 20180825
  13. ENOXAPARIN [Concomitant]
     Active Substance: ENOXAPARIN
     Indication: Prophylaxis
     Dosage: UNK UNK, UNK
     Route: 058
     Dates: start: 20180822, end: 20180831
  14. PANTOPRAZOLE [Concomitant]
     Active Substance: PANTOPRAZOLE
     Indication: Prophylaxis
     Dosage: UNK UNK, UNK
     Route: 048
     Dates: start: 20180822, end: 20190207
  15. NALOXONE HYDROCHLORIDE\OXYCODONE HYDROCHLORIDE [Concomitant]
     Active Substance: NALOXONE HYDROCHLORIDE\OXYCODONE HYDROCHLORIDE
     Dosage: UNK UNK, UNK
     Route: 048
     Dates: start: 20180825, end: 20180828
  16. BUTYLSCOPOLAMINE BROMIDE [Concomitant]
     Active Substance: BUTYLSCOPOLAMINE BROMIDE
     Indication: Prophylaxis
     Dosage: UNK UNK, UNK
     Route: 042
     Dates: start: 20180826, end: 20180826
  17. MELATONIN [Concomitant]
     Active Substance: MELATONIN
     Indication: Prophylaxis
     Dosage: UNK UNK, UNK
     Route: 048
     Dates: start: 20180826, end: 20180910
  18. LACTULOSE [Concomitant]
     Active Substance: LACTULOSE
     Indication: Prophylaxis
     Dosage: UNK
     Route: 048
     Dates: start: 20180826, end: 20180828
  19. POLYETHYLENE GLYCOL 3350 [Concomitant]
     Active Substance: POLYETHYLENE GLYCOL 3350
     Indication: Prophylaxis
     Dosage: UNK
     Route: 048
     Dates: start: 20180826, end: 20180828
  20. DOCUSATE\SENNOSIDES [Concomitant]
     Active Substance: DOCUSATE\SENNOSIDES
     Indication: Prophylaxis
     Dosage: UNK
     Route: 048
     Dates: start: 20180827, end: 20180910
  21. SODIUM PHOSPHATE, MONOBASIC [Concomitant]
     Active Substance: SODIUM PHOSPHATE, MONOBASIC
     Dosage: UNK
     Route: 048
     Dates: start: 20180827, end: 20180827
  22. HYDROMORPHONE [Concomitant]
     Active Substance: HYDROMORPHONE
     Dosage: UNK
     Route: 048
     Dates: start: 20180828, end: 20180921
  23. MORPHINE [Concomitant]
     Active Substance: MORPHINE
     Dosage: UNK
     Route: 058
     Dates: start: 20180828, end: 20180830
  24. MORPHINE [Concomitant]
     Active Substance: MORPHINE
     Dosage: UNK
     Route: 058
     Dates: start: 20180907, end: 20180907
  25. FUROSEMIDE [Concomitant]
     Active Substance: FUROSEMIDE
     Indication: Prophylaxis
     Dosage: UNK
     Route: 048
     Dates: start: 20180829, end: 20180829
  26. TEMAZEPAM [Concomitant]
     Active Substance: TEMAZEPAM
     Indication: Prophylaxis
     Dosage: UNK
     Route: 048
     Dates: start: 20180829, end: 20180830
  27. HUMAN RED BLOOD CELL [Concomitant]
     Active Substance: HUMAN RED BLOOD CELL
     Dosage: UNK
     Route: 042
     Dates: start: 20180825, end: 20181023

REACTIONS (2)
  - Infusion related reaction [Recovered/Resolved]
  - Pneumonia viral [Recovered/Resolved]

NARRATIVE: CASE EVENT DATE: 20180907
